FAERS Safety Report 9922630 (Version 1)
Quarter: 2014Q1

REPORT INFORMATION
  Report Type: Spontaneous
  Country: US (occurrence: US)
  Receive Date: 20140225
  Receipt Date: 20140225
  Transmission Date: 20141002
  Serious: Yes (Death)
  Sender: FDA-Public Use
  Company Number: US-TEVA-463909USA

PATIENT
  Sex: Male

DRUGS (7)
  1. ACTIQ [Suspect]
     Indication: LUNG NEOPLASM MALIGNANT
  2. HYDROMORPHONE [Concomitant]
  3. CLONIDINE [Concomitant]
  4. BACLOFEN [Concomitant]
  5. BUPIVACAINE [Concomitant]
  6. DILAUDID [Concomitant]
     Indication: PAIN
     Route: 048
  7. METHADONE [Concomitant]
     Indication: PAIN

REACTIONS (1)
  - Death [Fatal]
